FAERS Safety Report 24433335 (Version 1)
Quarter: 2024Q4

REPORT INFORMATION
  Report Type: Spontaneous
  Country: US (occurrence: US)
  Receive Date: 20241014
  Receipt Date: 20241014
  Transmission Date: 20250115
  Serious: Yes (Other)
  Sender: ALEXION PHARMACEUTICALS
  Company Number: US-AstraZeneca-CH-00720944A

PATIENT
  Age: 49 Year

DRUGS (4)
  1. STRENSIQ [Suspect]
     Active Substance: ASFOTASE ALFA
     Indication: Hypophosphatasia
     Dosage: STRENGTH: 80 MG AND 40 MG, DOSE: 80 MG/0.8 ML AND 40 MG/ML, TIW (MONDAY WEDNESDAY AND FRIDAYS)
     Route: 065
  2. STRENSIQ [Suspect]
     Active Substance: ASFOTASE ALFA
     Dosage: STRENGTH: 80 MG AND 40 MG, DOSE: 80 MG/0.8 ML AND 40 MG/ML, TIW (MONDAY WEDNESDAY AND FRIDAYS)
  3. STRENSIQ [Suspect]
     Active Substance: ASFOTASE ALFA
     Dosage: STRENGTH: 80 MG AND 40 MG, DOSE: 80 MG/0.8 ML AND 40 MG/ML, TIW (MONDAY WEDNESDAY AND FRIDAYS)
     Route: 065
  4. STRENSIQ [Suspect]
     Active Substance: ASFOTASE ALFA
     Dosage: STRENGTH: 80 MG AND 40 MG, DOSE: 80 MG/0.8 ML AND 40 MG/ML, TIW (MONDAY WEDNESDAY AND FRIDAYS)

REACTIONS (5)
  - Seizure [Recovered/Resolved]
  - Flushing [Recovered/Resolved]
  - Feeling hot [Recovered/Resolved]
  - Tremor [Recovered/Resolved]
  - Feeling cold [Recovered/Resolved]
